FAERS Safety Report 23847636 (Version 1)
Quarter: 2024Q2

REPORT INFORMATION
  Report Type: Spontaneous
  Country: US (occurrence: US)
  Receive Date: 20240513
  Receipt Date: 20240513
  Transmission Date: 20240716
  Serious: Yes (Other)
  Sender: FDA-Public Use
  Company Number: US-Merck Healthcare KGaA-2024025037

PATIENT
  Age: 76 Year
  Sex: Male

DRUGS (1)
  1. SEROSTIM [Suspect]
     Active Substance: SOMATROPIN
     Indication: Cachexia
     Dosage: 4 MG VIAL, INJECTABLE UNDER THE SKIN, DAILY ONCE.

REACTIONS (4)
  - Spinal stenosis [Unknown]
  - Knee arthroplasty [Unknown]
  - Carpal tunnel syndrome [Unknown]
  - Incorrect dose administered [Unknown]
